FAERS Safety Report 23203010 (Version 11)
Quarter: 2024Q4

REPORT INFORMATION
  Report Type: Spontaneous
  Country: CA (occurrence: CA)
  Receive Date: 20231120
  Receipt Date: 20241010
  Transmission Date: 20250114
  Serious: Yes (Hospitalization, Other)
  Sender: PFIZER
  Company Number: CA-PFIZER INC-202300081191

PATIENT
  Age: 60 Year
  Sex: Female
  Weight: 105 kg

DRUGS (37)
  1. ABRILADA [Suspect]
     Active Substance: ADALIMUMAB-AFZB
     Indication: Crohn^s disease
     Dosage: 40 MG Q2 WEEKS, INDUCTION 160MG WEEK 0,80MG WEEK2 THEN MAINTENANCE 40MG Q2 WEEKS WEEK 4 (1DF)
     Route: 058
     Dates: start: 20230206
  2. ABRILADA [Suspect]
     Active Substance: ADALIMUMAB-AFZB
     Dosage: 80 MG, WEEK 2
     Route: 058
     Dates: start: 20230329
  3. ABRILADA [Suspect]
     Active Substance: ADALIMUMAB-AFZB
     Dosage: 40 MG, EVERY 2 WEEKS
     Route: 058
     Dates: start: 20230413
  4. ABRILADA [Suspect]
     Active Substance: ADALIMUMAB-AFZB
     Dosage: 40 MG, EVERY 2 WEEKS
     Route: 058
     Dates: start: 20230428
  5. ABRILADA [Suspect]
     Active Substance: ADALIMUMAB-AFZB
     Dosage: 40 MG, EVERY 2 WEEKS
     Route: 058
     Dates: start: 20230511
  6. ABRILADA [Suspect]
     Active Substance: ADALIMUMAB-AFZB
     Dosage: 40 MG, EVERY 2 WEEKS
     Route: 058
     Dates: start: 20230526
  7. ABRILADA [Suspect]
     Active Substance: ADALIMUMAB-AFZB
     Dosage: 40 MG, EVERY 2 WEEKS
     Route: 058
     Dates: start: 20230914
  8. ABRILADA [Suspect]
     Active Substance: ADALIMUMAB-AFZB
     Dosage: 40 MG, EVERY 2 WEEKS
     Route: 058
     Dates: start: 20231027
  9. ABRILADA [Suspect]
     Active Substance: ADALIMUMAB-AFZB
     Dosage: 40 MG, EVERY 2 WEEKS
     Route: 058
     Dates: start: 20231114
  10. ABRILADA [Suspect]
     Active Substance: ADALIMUMAB-AFZB
     Dosage: 40 MG, EVERY 2 WEEKS
     Route: 058
     Dates: start: 20231201
  11. ABRILADA [Suspect]
     Active Substance: ADALIMUMAB-AFZB
     Dosage: 40 MG, EVERY 2 WEEKS
     Route: 058
     Dates: start: 20231215
  12. ABRILADA [Suspect]
     Active Substance: ADALIMUMAB-AFZB
     Dosage: 40MG EVERY 2 WEEKS (WEEK 4. PREFILLED PEN,2 WEEKS AND 6 DAYS AFTER LAST TREATMENT)
     Route: 058
     Dates: start: 20240104
  13. ABRILADA [Suspect]
     Active Substance: ADALIMUMAB-AFZB
     Dosage: 40MG EVERY 2 WEEKS (WEEK 4. PREFILLED PEN,2 WEEKS AND 6 DAYS AFTER LAST TREATMENT)
     Route: 058
     Dates: start: 20240215
  14. ABRILADA [Suspect]
     Active Substance: ADALIMUMAB-AFZB
     Dosage: 40MG EVERY 2 WEEKS (3 WEEKS AND 1 DAY)
     Route: 058
     Dates: start: 20240308
  15. ABRILADA [Suspect]
     Active Substance: ADALIMUMAB-AFZB
     Dosage: 40 MG, EVERY 2 WEEKS
     Route: 058
     Dates: start: 20240322
  16. ABRILADA [Suspect]
     Active Substance: ADALIMUMAB-AFZB
     Dosage: 40 MG, AFTER 2 WEEKS
     Route: 058
     Dates: start: 20240403
  17. ABRILADA [Suspect]
     Active Substance: ADALIMUMAB-AFZB
     Dosage: 40 MG, EVERY 2 WEEKS (INDUCTION 160MG WEEK 0, 80 MG WEEK 2 THEN MAINTENANCE 40MG Q2WKS WEEK 4)
     Route: 058
     Dates: start: 20240419
  18. ABRILADA [Suspect]
     Active Substance: ADALIMUMAB-AFZB
     Dosage: 40 MG, INDUCTION 160MG WEEK 0,80MG WEEK2 THEN MAINTENANCE 40MG Q2 WEEKS WEEK 4(3 WEEKS AND 6 DAYS )
     Route: 058
     Dates: start: 20240516
  19. ABRILADA [Suspect]
     Active Substance: ADALIMUMAB-AFZB
     Dosage: 40 MG, 2 WEEKS
     Route: 058
     Dates: start: 20240530
  20. ABRILADA [Suspect]
     Active Substance: ADALIMUMAB-AFZB
     Dosage: 40 MG,  2 WEEKS
     Route: 058
     Dates: start: 20240613
  21. ABRILADA [Suspect]
     Active Substance: ADALIMUMAB-AFZB
     Dosage: 40 MG, 2 WEEKS
     Route: 058
     Dates: start: 20240628
  22. ABRILADA [Suspect]
     Active Substance: ADALIMUMAB-AFZB
     Dosage: 1 DF (INDUCTION 160MG WEEK 0, 80MG WEEK 2 THEN MAINTENANCE 40MG EVERY 2 WEEKS WEEK 4)
     Route: 058
     Dates: start: 20240712
  23. ABRILADA [Suspect]
     Active Substance: ADALIMUMAB-AFZB
     Dosage: 40 MG, 7 WEEKS(1 DF INDUCTION 160MG WEEK 0, 80MG WEEK 2 THEN MAINTENANCE 40MG EVERY 2 WEEKS WEEK 4)
     Route: 058
     Dates: start: 20240830
  24. ABRILADA [Suspect]
     Active Substance: ADALIMUMAB-AFZB
     Dosage: 40 MG, WEEKLY
     Route: 058
     Dates: start: 2024
  25. ABRILADA [Suspect]
     Active Substance: ADALIMUMAB-AFZB
     Dosage: 40 MG (40 MG, WEEKLY)
     Route: 058
     Dates: start: 20240906
  26. ABRILADA [Suspect]
     Active Substance: ADALIMUMAB-AFZB
     Dosage: 40 MG, WEEKLY  (1 WEEK)
     Route: 058
     Dates: start: 20240913
  27. ABRILADA [Suspect]
     Active Substance: ADALIMUMAB-AFZB
     Dosage: 40 MG, WEEKLY  (1 WEEK)
     Route: 058
     Dates: start: 20240927
  28. ABRILADA [Suspect]
     Active Substance: ADALIMUMAB-AFZB
     Dosage: 40 MG, WEEKLY
     Route: 058
     Dates: start: 20241004
  29. CALCIUM [Concomitant]
     Active Substance: CALCIUM
     Dosage: UNK
  30. GABAPENTIN [Concomitant]
     Active Substance: GABAPENTIN
     Dosage: UNK, AS NEEDED
  31. HYDROMORPHONE [Concomitant]
     Active Substance: HYDROMORPHONE
     Dosage: UNK
  32. PANTOPRAZOLE [Concomitant]
     Active Substance: PANTOPRAZOLE
     Dosage: UNK
  33. PAROXETINE [Concomitant]
     Active Substance: PAROXETINE
     Dosage: UNK
  34. PREDNISONE [Concomitant]
     Active Substance: PREDNISONE
     Dosage: 1 DF
  35. PREDNISONE [Concomitant]
     Active Substance: PREDNISONE
     Dosage: 50 MG, 1X/DAY
     Dates: start: 20231129
  36. PREDNISONE [Concomitant]
     Active Substance: PREDNISONE
     Dosage: 1 DF
  37. SENNOSIDES [Concomitant]
     Active Substance: SENNOSIDES
     Dosage: UNK

REACTIONS (24)
  - Condition aggravated [Recovering/Resolving]
  - Lower respiratory tract infection [Recovering/Resolving]
  - Defaecation urgency [Recovering/Resolving]
  - Drug ineffective [Unknown]
  - Influenza like illness [Not Recovered/Not Resolved]
  - Asthenia [Not Recovered/Not Resolved]
  - Jaundice [Not Recovered/Not Resolved]
  - Stress [Unknown]
  - Anxiety [Unknown]
  - Arthralgia [Not Recovered/Not Resolved]
  - Diarrhoea [Recovered/Resolved]
  - Constipation [Not Recovered/Not Resolved]
  - Somnolence [Unknown]
  - Pruritus [Unknown]
  - Cough [Not Recovered/Not Resolved]
  - Malaise [Recovering/Resolving]
  - Dizziness [Unknown]
  - Night sweats [Unknown]
  - Fatigue [Unknown]
  - Anal fissure [Recovered/Resolved]
  - Intentional dose omission [Unknown]
  - Wrong technique in device usage process [Unknown]
  - Incorrect dose administered by device [Unknown]
  - Off label use [Unknown]

NARRATIVE: CASE EVENT DATE: 20230101
